FAERS Safety Report 4515358-2 (Version None)
Quarter: 2004Q4

REPORT INFORMATION
  Report Type: 
  Country: None (occurrence: None)
  Receive Date: 20041201
  Receipt Date: 20030923
  Transmission Date: 20050328
  Serious: Yes (Hospitalization)
  Sender: FDA-Public Use
  Company Number: ES-ROCHE-347645

PATIENT
  Age: 39 Year
  Sex: Male

DRUGS (2)
  1. PEG-INTERFERON ALFA 2A (RO 25-8310) [Suspect]
     Route: 058
     Dates: start: 20020513, end: 20030407
  2. RIBAVIRIN [Suspect]
     Route: 048
     Dates: start: 20020513, end: 20030412

REACTIONS (1)
  - PULMONARY TUBERCULOSIS [None]
